FAERS Safety Report 5162519-8 (Version None)
Quarter: 2006Q4

REPORT INFORMATION
  Report Type: 
  Country: None (occurrence: None)
  Receive Date: 20061121
  Receipt Date: 20061106
  Transmission Date: 20070319
  Serious: Yes (Other)
  Sender: FDA-Public Use
  Company Number: US-2006-018624

PATIENT
  Age: 58 Year
  Sex: Female
  Weight: 98.9 kg

DRUGS (8)
  1. BETASERON [Suspect]
     Indication: SECONDARY PROGRESSIVE MULTIPLE SCLEROSIS
     Dosage: 8 MIU, EVERY 2D, SUBCUTANEOUS
     Route: 058
     Dates: start: 20050614
  2. INDERAL LA [Concomitant]
  3. ZOCOR [Concomitant]
  4. ZOLOFT [Concomitant]
  5. LISINOPRIL [Concomitant]
  6. METFORMIN HCL [Concomitant]
  7. MIACALCIN [Concomitant]
  8. PREVACID [Concomitant]

REACTIONS (9)
  - BLOOD TEST ABNORMAL [None]
  - BREAST CANCER FEMALE [None]
  - HEPATOMEGALY [None]
  - INJECTION SITE DISCOLOURATION [None]
  - INJECTION SITE ERYTHEMA [None]
  - INJECTION SITE PAIN [None]
  - LUNG NEOPLASM [None]
  - RENAL CYST [None]
  - SPLENOMEGALY [None]
